FAERS Safety Report 16439896 (Version 1)
Quarter: 2019Q2

REPORT INFORMATION
  Report Type: Spontaneous
  Country: IT (occurrence: IT)
  Receive Date: 20190617
  Receipt Date: 20190617
  Transmission Date: 20190711
  Serious: Yes (Hospitalization)
  Sender: FDA-Public Use
  Company Number: IT-CURIUM PHARMACEUTICALS-201900243

PATIENT
  Age: 88 Year
  Sex: Female

DRUGS (2)
  1. TECHNETIUM TC 99M TIATIDE [Suspect]
     Active Substance: TECHNETIUM TC-99M TIATIDE
     Indication: BONE SCAN
     Route: 042
     Dates: start: 20190521, end: 20190521
  2. OSTEOCIS [Suspect]
     Active Substance: TECHNETIUM TC-99M OXIDRONATE
     Indication: BONE SCAN
     Route: 042
     Dates: start: 20190521, end: 20190521

REACTIONS (2)
  - Depressed level of consciousness [Unknown]
  - Motor dysfunction [Unknown]

NARRATIVE: CASE EVENT DATE: 20190521
